FAERS Safety Report 7888180-7 (Version None)
Quarter: 2011Q4

REPORT INFORMATION
  Report Type: 
  Country: None (occurrence: None)
  Receive Date: 20111103
  Receipt Date: 20111031
  Transmission Date: 20120403
  Serious: Yes (Other)
  Sender: FDA-Public Use
  Company Number: US-SANOFI-AVENTIS-2011SA071414

PATIENT
  Sex: Male

DRUGS (7)
  1. UROXATRAL [Suspect]
     Route: 048
  2. UROXATRAL [Suspect]
     Route: 048
     Dates: start: 20090101
  3. UROXATRAL [Suspect]
     Route: 048
  4. UROXATRAL [Suspect]
     Indication: URINARY RETENTION
     Route: 048
     Dates: start: 20090101
  5. UROXATRAL [Suspect]
     Route: 048
  6. PROSCAR [Concomitant]
  7. UROXATRAL [Suspect]
     Indication: BLADDER CATHETER REMOVAL
     Route: 048
     Dates: start: 20090101

REACTIONS (4)
  - SURGERY [None]
  - TREATMENT NONCOMPLIANCE [None]
  - PHARYNGEAL DISORDER [None]
  - SENSATION OF FOREIGN BODY [None]
